FAERS Safety Report 15545800 (Version 1)
Quarter: 2018Q4

REPORT INFORMATION
  Report Type: Spontaneous
  Country: US (occurrence: US)
  Receive Date: 20181017
  Receipt Date: 20181017
  Transmission Date: 20190205
  Serious: Yes (Disabling)
  Sender: FDA-Public Use
  Company Number: None

PATIENT
  Age: 19 Year
  Sex: Female
  Weight: 57.61 kg

DRUGS (2)
  1. GUANFACINE 1MG [Suspect]
     Active Substance: GUANFACINE
     Indication: ANXIETY
     Dates: start: 201612, end: 20180806
  2. GUANFACINE 1MG [Suspect]
     Active Substance: GUANFACINE
     Indication: ATTENTION DEFICIT/HYPERACTIVITY DISORDER
     Dates: start: 201612, end: 20180806

REACTIONS (5)
  - Tremor [None]
  - Poor quality sleep [None]
  - Dyskinesia [None]
  - Contusion [None]
  - Blister [None]

NARRATIVE: CASE EVENT DATE: 2016
